FAERS Safety Report 9345370 (Version 9)
Quarter: 2019Q2

REPORT INFORMATION
  Report Type: Spontaneous
  Country: CA (occurrence: CA)
  Receive Date: 20130613
  Receipt Date: 20190603
  Transmission Date: 20190711
  Serious: Yes (Other)
  Sender: FDA-Public Use
  Company Number: CA-ROCHE-1236018

PATIENT
  Age: 65 Year
  Sex: Female

DRUGS (8)
  1. FOSAMAX [Concomitant]
     Active Substance: ALENDRONATE SODIUM
     Indication: PRODUCT USED FOR UNKNOWN INDICATION
     Route: 048
  2. XOLAIR [Suspect]
     Active Substance: OMALIZUMAB
     Route: 058
     Dates: start: 20120913
  3. PULMICORT TURBUHALER [Concomitant]
     Active Substance: BUDESONIDE
     Indication: PRODUCT USED FOR UNKNOWN INDICATION
     Dosage: UNK UNK, QD
     Route: 055
  4. GABAPENTIN. [Concomitant]
     Active Substance: GABAPENTIN
     Indication: PRODUCT USED FOR UNKNOWN INDICATION
     Dosage: UNK UNK, TID
     Route: 065
  5. PREDNISONE. [Concomitant]
     Active Substance: PREDNISONE
     Indication: ASTHMA
     Dosage: DOSE INCREASED 3 TIMES IN THE PAST 12 MONTHS
     Route: 048
  6. XOLAIR [Suspect]
     Active Substance: OMALIZUMAB
     Indication: ASTHMA
     Route: 058
     Dates: start: 20120829
  7. ARTHROTEC [Concomitant]
     Active Substance: DICLOFENAC SODIUM\MISOPROSTOL
     Indication: PRODUCT USED FOR UNKNOWN INDICATION
     Dosage: UNK UNK, BID
     Route: 048
  8. VENTOLIN [Concomitant]
     Active Substance: ALBUTEROL SULFATE
     Indication: PRODUCT USED FOR UNKNOWN INDICATION
     Dosage: NEEDED TO USE AT AN AVERAGE OF 25 TIMES PER WEEK
     Route: 055

REACTIONS (16)
  - Forced expiratory volume decreased [Not Recovered/Not Resolved]
  - Lower limb fracture [Unknown]
  - Cough [Unknown]
  - Depression [Unknown]
  - Sputum discoloured [Unknown]
  - Obstructive airways disorder [Unknown]
  - Asthma [Unknown]
  - Sciatica [Unknown]
  - Malaise [Unknown]
  - Rib fracture [Unknown]
  - Fall [Unknown]
  - Dyspnoea [Unknown]
  - Balance disorder [Unknown]
  - Lung infection [Unknown]
  - Pain in extremity [Unknown]
  - Drug ineffective [Unknown]

NARRATIVE: CASE EVENT DATE: 20170324
